FAERS Safety Report 6419917-1 (Version None)
Quarter: 2009Q4

REPORT INFORMATION
  Report Type: 
  Country: None (occurrence: None)
  Receive Date: 20091029
  Receipt Date: 20091021
  Transmission Date: 20100525
  Serious: Yes (Other)
  Sender: FDA-Public Use
  Company Number: GB-ABBOTT-09P-167-0604274-00

PATIENT
  Sex: Female

DRUGS (2)
  1. VALPROATE SODIUM [Suspect]
     Indication: MYOCLONUS
     Route: 048
     Dates: start: 20021001
  2. CLOZARIL [Interacting]
     Indication: SCHIZOPHRENIA
     Route: 048
     Dates: start: 20020521

REACTIONS (4)
  - DRUG INTERACTION [None]
  - EMOTIONAL DISORDER [None]
  - MYOCLONUS [None]
  - WEIGHT INCREASED [None]
